FAERS Safety Report 4851888-1 (Version None)
Quarter: 2005Q4

REPORT INFORMATION
  Report Type: 
  Country: None (occurrence: None)
  Receive Date: 20051209
  Receipt Date: 20051130
  Transmission Date: 20060501
  Serious: Yes (Death)
  Sender: FDA-Public Use
  Company Number: 2005-11-1386

PATIENT
  Age: 43 Year
  Sex: Male
  Weight: 75 kg

DRUGS (8)
  1. PEG-INTRON [Suspect]
     Indication: HEPATITIS C
     Dosage: 120-100*UG QW SUBCUTANEOUS
     Route: 058
     Dates: start: 20050427, end: 20050427
  2. PEG-INTRON [Suspect]
     Indication: HEPATITIS C
     Dosage: 120-100*UG QW SUBCUTANEOUS
     Route: 058
     Dates: start: 20050427, end: 20051117
  3. PEG-INTRON [Suspect]
     Indication: HEPATITIS C
     Dosage: 120-100*UG QW SUBCUTANEOUS
     Route: 058
     Dates: start: 20050506, end: 20051117
  4. REBETOL [Suspect]
     Indication: HEPATITIS C
     Dosage: 1000-800* MG ORAL
     Route: 048
     Dates: start: 20050427, end: 20050720
  5. REBETOL [Suspect]
     Indication: HEPATITIS C
     Dosage: 1000-800* MG ORAL
     Route: 048
     Dates: start: 20050427, end: 20051121
  6. REBETOL [Suspect]
     Indication: HEPATITIS C
     Dosage: 1000-800* MG ORAL
     Route: 048
     Dates: start: 20050721, end: 20051121
  7. SELBEX CAPSULES [Concomitant]
  8. LENDORMIN [Concomitant]

REACTIONS (4)
  - CARDIAC FAILURE ACUTE [None]
  - INSOMNIA [None]
  - VENTRICULAR FIBRILLATION [None]
  - WHITE BLOOD CELL COUNT DECREASED [None]
